FAERS Safety Report 10160962 (Version 3)
Quarter: 2014Q2

REPORT INFORMATION
  Report Type: Spontaneous
  Country: US (occurrence: US)
  Receive Date: 20140508
  Receipt Date: 20140612
  Transmission Date: 20141212
  Serious: Yes (Life-Threatening, Hospitalization)
  Sender: FDA-Public Use
  Company Number: US-BAXTER-2014BAX022563

PATIENT
  Age: 16 Year
  Sex: Male

DRUGS (3)
  1. GAMMAGARD LIQUID [Suspect]
     Indication: SELECTIVE IGG SUBCLASS DEFICIENCY
     Route: 042
     Dates: start: 2011, end: 201403
  2. VIMPAT [Concomitant]
     Indication: EPILEPSY
     Route: 048
  3. TRILEPTAL [Concomitant]
     Indication: EPILEPSY
     Route: 048

REACTIONS (1)
  - Pulmonary embolism [Recovered/Resolved]
